APPROVED DRUG PRODUCT: INTUNIV
Active Ingredient: GUANFACINE HYDROCHLORIDE
Strength: EQ 3MG BASE
Dosage Form/Route: TABLET, EXTENDED RELEASE;ORAL
Application: N022037 | Product #003 | TE Code: AB
Applicant: TAKEDA PHARMACEUTICALS USA INC
Approved: Sep 2, 2009 | RLD: Yes | RS: No | Type: RX